FAERS Safety Report 21169808 (Version 1)
Quarter: 2022Q3

REPORT INFORMATION
  Report Type: Spontaneous
  Country: CA (occurrence: CA)
  Receive Date: 20220804
  Receipt Date: 20220804
  Transmission Date: 20221027
  Serious: Yes (Death, Other)
  Sender: FDA-Public Use
  Company Number: CA-BAXTER-2022BAX016517

PATIENT

DRUGS (5)
  1. CYCLOPHOSPHAMIDE [Suspect]
     Active Substance: CYCLOPHOSPHAMIDE
     Indication: Acquired haemophilia
     Dosage: DOSAGE FORM-NOT SPECIFIED, ROUTE-INTRAVENOUS (NOT OTHERWISE SPECIFIED)
     Route: 042
  2. NIASTASE [Suspect]
     Active Substance: COAGULATION FACTOR VIIA RECOMBINANT HUMAN
     Indication: Acquired haemophilia
     Dosage: DOSAGE FORM- POWDER FOR SOLUTION INTRAVENOUS, ROUTE-INTRAVENOUS (NOT OTHERWISE SPECIFIED)
     Route: 042
  3. PREDNISONE [Suspect]
     Active Substance: PREDNISONE
     Indication: Product used for unknown indication
     Dosage: DOSAGE FORM-NOT SPECIFIED
     Route: 065
  4. RITUXIMAB [Suspect]
     Active Substance: RITUXIMAB
     Indication: Product used for unknown indication
     Route: 065
  5. FEIBA NF [Suspect]
     Active Substance: ANTI-INHIBITOR COAGULANT COMPLEX
     Indication: Acquired haemophilia
     Dosage: ROUTE- INTRAVENOUS (NOT OTHERWISE NOT SPECIFIED)
     Route: 042

REACTIONS (3)
  - Acquired haemophilia [Fatal]
  - Pre-existing disease [Fatal]
  - Therapy partial responder [Fatal]
